FAERS Safety Report 9461208 (Version 1)
Quarter: 2013Q3

REPORT INFORMATION
  Report Type: Spontaneous
  Country: US (occurrence: None)
  Receive Date: 20130814
  Receipt Date: 20130814
  Transmission Date: 20140515
  Serious: No
  Sender: FDA-Public Use
  Company Number: None

PATIENT
  Age: 64 Year
  Sex: Male
  Weight: 88.45 kg

DRUGS (16)
  1. ZOLPIDEM [Suspect]
  2. METOPROLOL [Concomitant]
  3. HCTZ [Concomitant]
  4. ALBUTEROL [Concomitant]
  5. SIMVASTATIN [Concomitant]
  6. VICODIN 5/325 [Concomitant]
  7. LEVOTHYROXIN [Concomitant]
  8. POTASSIUM CITRATE [Concomitant]
  9. OMEPRAZOLE [Concomitant]
  10. DOXYCYCLINE [Concomitant]
  11. LIBRAX [Concomitant]
  12. VIT D [Concomitant]
  13. LACTATE [Concomitant]
  14. ALPHA GALACTOSIDASE A, HUMAN\AMYLASE\CELLULASE\HEMICELLULASE\LACTASE\LIPASE\PHYTASE (ASPERGILLUS NIGER)\PROTEASE [Concomitant]
  15. GLUCOSAMINE [Concomitant]
  16. SAME [Concomitant]

REACTIONS (3)
  - Product substitution issue [None]
  - Insomnia [None]
  - Product quality issue [None]
